FAERS Safety Report 9796056 (Version 1)
Quarter: 2014Q1

REPORT INFORMATION
  Report Type: Spontaneous
  Country: FR (occurrence: FR)
  Receive Date: 20140103
  Receipt Date: 20140103
  Transmission Date: 20141002
  Serious: Yes (Other)
  Sender: FDA-Public Use
  Company Number: FR-PFIZER INC-2013373445

PATIENT
  Age: 82 Year
  Sex: Female

DRUGS (4)
  1. NEURONTIN [Suspect]
     Dosage: 600 MG, 3X/DAY
     Route: 048
     Dates: start: 200909
  2. LAMICTAL [Suspect]
     Dosage: 50 MG, 2X/DAY
     Route: 048
     Dates: start: 201201
  3. URBANYL [Suspect]
     Dosage: 2.5 MG, 1X/DAY
     Route: 048
     Dates: start: 201201
  4. TAREG [Suspect]
     Dosage: 160 MG, 1X/DAY
     Route: 048

REACTIONS (1)
  - Age-related macular degeneration [Not Recovered/Not Resolved]
